FAERS Safety Report 8123938-0 (Version None)
Quarter: 2012Q1

REPORT INFORMATION
  Report Type: 
  Country: None (occurrence: None)
  Receive Date: 20120209
  Receipt Date: 20120201
  Transmission Date: 20120608
  Serious: Yes (Other)
  Sender: FDA-Public Use
  Company Number: GB-JNJFOC-20111010404

PATIENT
  Sex: Male
  Weight: 82.56 kg

DRUGS (3)
  1. CONCERTA [Suspect]
     Indication: ATTENTION DEFICIT/HYPERACTIVITY DISORDER
     Route: 048
  2. CONCERTA [Suspect]
     Route: 048
     Dates: start: 20111101
  3. ALL OTHER THERAPEUTIC PRODUCTS [Suspect]
     Indication: PRODUCT USED FOR UNKNOWN INDICATION
     Route: 065

REACTIONS (2)
  - PSYCHOTIC DISORDER [None]
  - SELF INJURIOUS BEHAVIOUR [None]
